FAERS Safety Report 24747867 (Version 1)
Quarter: 2024Q4

REPORT INFORMATION
  Report Type: Spontaneous
  Country: CZ (occurrence: CZ)
  Receive Date: 20241218
  Receipt Date: 20241218
  Transmission Date: 20250114
  Serious: Yes (Life-Threatening, Other)
  Sender: TEVA
  Company Number: CZ-EMA-DD-20241203-7482711-141817

PATIENT
  Age: 67 Year
  Sex: Female

DRUGS (1)
  1. DOCETAXEL [Suspect]
     Active Substance: DOCETAXEL
     Indication: Metastatic lymphoma
     Dosage: TIME INTERVAL: CYCLICAL: UNK UNK, QCY
     Route: 065
     Dates: start: 202110, end: 202201

REACTIONS (1)
  - Neutropenia [Unknown]
